FAERS Safety Report 9163038 (Version 2)
Quarter: 2013Q1

REPORT INFORMATION
  Report Type: Report from Study
  Country: IT (occurrence: IT)
  Receive Date: 20130314
  Receipt Date: 20130319
  Transmission Date: 20140127
  Serious: Yes (Death, Other)
  Sender: FDA-Public Use
  Company Number: IT-BAXTER-2013BAX008597

PATIENT
  Age: 79 Year
  Sex: Female
  Weight: 52 kg

DRUGS (8)
  1. ENDOXAN BAXTER [Suspect]
     Indication: B-CELL LYMPHOMA
     Route: 065
  2. RITUXIMAB [Suspect]
     Indication: B-CELL LYMPHOMA
     Route: 058
     Dates: start: 20121122, end: 20130201
  3. RITUXIMAB [Suspect]
     Route: 058
     Dates: start: 20130201
  4. VINCRISTINE [Suspect]
     Indication: B-CELL LYMPHOMA
     Route: 065
  5. PREDNISOLONE [Suspect]
     Indication: B-CELL LYMPHOMA
     Route: 065
  6. TELMISARTAN [Concomitant]
     Indication: HYPERTENSION
     Route: 065
     Dates: start: 20130215
  7. ALLOPURINOL [Concomitant]
     Indication: PROPHYLAXIS
     Route: 065
     Dates: start: 20121122, end: 20130215
  8. OMEPRAZOLE [Concomitant]
     Indication: PROPHYLAXIS
     Route: 065
     Dates: start: 20121122, end: 20130215

REACTIONS (2)
  - Sepsis [Fatal]
  - Febrile neutropenia [Unknown]
